FAERS Safety Report 18498170 (Version 1)
Quarter: 2020Q4

REPORT INFORMATION
  Report Type: Spontaneous
  Country: IT (occurrence: IT)
  Receive Date: 20201113
  Receipt Date: 20201113
  Transmission Date: 20210114
  Serious: Yes (Other)
  Sender: FDA-Public Use
  Company Number: IT-AUROBINDO-AUR-APL-2020-055517

PATIENT
  Age: 75 Year
  Sex: Female

DRUGS (1)
  1. ARIPIPRAZOLE TABLETS [Suspect]
     Active Substance: ARIPIPRAZOLE
     Indication: JEALOUS DELUSION
     Dosage: 2.5 MILLIGRAM, ONCE A DAY
     Route: 065

REACTIONS (2)
  - Parkinson^s disease [Unknown]
  - Product use in unapproved indication [Unknown]
